FAERS Safety Report 22646971 (Version 1)
Quarter: 2023Q2

REPORT INFORMATION
  Report Type: Spontaneous
  Country: BR (occurrence: BR)
  Receive Date: 20230627
  Receipt Date: 20230627
  Transmission Date: 20230721
  Serious: Yes (Hospitalization, Other)
  Sender: FDA-Public Use
  Company Number: BR-SERVIER-S23006096

PATIENT
  Age: 73 Year
  Sex: Female

DRUGS (2)
  1. LONSURF [Suspect]
     Active Substance: TIPIRACIL HYDROCHLORIDE\TRIFLURIDINE
     Indication: Colon cancer
     Dosage: 100 MG, DAILY, ON DAYS 1-5 AND 8-12 OF EACH 28-DAY CYCLE?DAILY DOSE: 100 MILLIGRAM(S)
     Route: 048
     Dates: start: 2022
  2. LONSURF [Suspect]
     Active Substance: TIPIRACIL HYDROCHLORIDE\TRIFLURIDINE
     Dosage: 100 MG, DAILY, ON DAYS 1-5 AND 8-12 OF EACH 28-DAY CYCLE?DAILY DOSE: 100 MILLIGRAM(S)
     Route: 048
     Dates: start: 2022

REACTIONS (3)
  - Diarrhoea [Unknown]
  - Coma [Not Recovered/Not Resolved]
  - Nodule [Unknown]

NARRATIVE: CASE EVENT DATE: 20230601
